FAERS Safety Report 10538156 (Version 14)
Quarter: 2015Q2

REPORT INFORMATION
  Report Type: Spontaneous
  Country: IL (occurrence: IL)
  Receive Date: 20141023
  Receipt Date: 20150601
  Transmission Date: 20150821
  Serious: Yes (Death, Hospitalization, Other)
  Sender: FDA-Public Use
  Company Number: IL-PFIZER INC-2014289818

PATIENT
  Age: 75 Year
  Sex: Male

DRUGS (12)
  1. GLUCOMIN [Concomitant]
     Active Substance: METFORMIN HYDROCHLORIDE
     Dosage: UNK
  2. OXYCOD [Concomitant]
  3. LERCAPRESS [Concomitant]
     Active Substance: ENALAPRIL MALEATE\LERCANIDIPINE HYDROCHLORIDE
     Dosage: UNK
  4. TRAMADEX [Concomitant]
     Active Substance: TRAMADOL
     Dosage: UNK
  5. NEOBLOC [Concomitant]
  6. GABAPENTIN. [Concomitant]
     Active Substance: GABAPENTIN
     Dosage: UNK
  7. AVILAC [Concomitant]
     Dosage: UNK
  8. LAXADIN [Concomitant]
     Dosage: UNK
  9. TARGIN [Concomitant]
     Active Substance: NALOXONE HYDROCHLORIDE\OXYCODONE HYDROCHLORIDE
  10. INLYTA [Suspect]
     Active Substance: AXITINIB
     Indication: RENAL CELL CARCINOMA
     Dosage: 5 MG, 2X/DAY, CONSECUTIVE
     Route: 048
     Dates: start: 20141010
  11. LOSARDEX [Concomitant]
     Dosage: UNK
  12. OPTALGIN [Concomitant]
     Active Substance: METAMIZOLE
     Dosage: UNK

REACTIONS (23)
  - Disease progression [Fatal]
  - Fungal skin infection [Unknown]
  - Bronchitis [Recovering/Resolving]
  - General physical health deterioration [Unknown]
  - Blood sodium decreased [Unknown]
  - Constipation [Unknown]
  - Decreased appetite [Unknown]
  - Nausea [Recovering/Resolving]
  - Back pain [Unknown]
  - Cardiac disorder [Unknown]
  - Malaise [Recovering/Resolving]
  - Renal cell carcinoma [Fatal]
  - Skin exfoliation [Unknown]
  - Dry mouth [Not Recovered/Not Resolved]
  - Asthenia [Not Recovered/Not Resolved]
  - Lip dry [Recovering/Resolving]
  - Urinary retention [Recovered/Resolved]
  - Blood pressure increased [Recovering/Resolving]
  - Chest discomfort [Recovered/Resolved]
  - Heart rate irregular [Recovered/Resolved]
  - Blood albumin decreased [Unknown]
  - Oral fungal infection [Unknown]
  - Cough [Recovered/Resolved]

NARRATIVE: CASE EVENT DATE: 2014
